FAERS Safety Report 4852881-5 (Version None)
Quarter: 2005Q4

REPORT INFORMATION
  Report Type: 
  Country: None (occurrence: None)
  Receive Date: 20051212
  Receipt Date: 20051201
  Transmission Date: 20060501
  Serious: Yes (Hospitalization, Disabling)
  Sender: FDA-Public Use
  Company Number: 2005163804

PATIENT
  Age: 60 Year
  Sex: Female
  Weight: 69.85 kg

DRUGS (10)
  1. LYRICA [Suspect]
     Indication: PAIN
     Dosage: 150 MG (75 MG, 2 IN 1 D), ORAL
     Route: 048
     Dates: start: 20050801, end: 20050101
  2. THYROXINE (LEVOTHYROXINE) [Concomitant]
  3. CO-AMILOFRUSE (AMILORIDE HYDROCHLORIDE, FUROSEMIDE) [Concomitant]
  4. BISOPROLOL FUMARATE [Concomitant]
  5. PERINDOPRIL (PERINDOPRIL) [Concomitant]
  6. AMIODARONE HCL [Concomitant]
  7. FERROUS SULPHATE (FERROUS SULFATE) [Concomitant]
  8. WARFAIN (WARFARIN) [Concomitant]
  9. SIMVASTATIN [Concomitant]
  10. ISOSORBIDE MONONITRATE (ISOSIRBIDE MONONITRATE) [Concomitant]

REACTIONS (3)
  - HYPERKALAEMIA [None]
  - HYPOAESTHESIA [None]
  - JOINT SWELLING [None]
